FAERS Safety Report 24324466 (Version 3)
Quarter: 2024Q3

REPORT INFORMATION
  Report Type: Spontaneous
  Country: FR (occurrence: FR)
  Receive Date: 20240916
  Receipt Date: 20240925
  Transmission Date: 20241016
  Serious: Yes (Life-Threatening)
  Sender: ASTELLAS
  Company Number: None

PATIENT
  Age: 10 Year
  Sex: Female
  Weight: 28 kg

DRUGS (27)
  1. TACROLIMUS [Suspect]
     Active Substance: TACROLIMUS
     Indication: Prophylaxis against transplant rejection
     Route: 048
     Dates: start: 20240607
  2. AMBISOME [Suspect]
     Active Substance: AMPHOTERICIN B
     Indication: Antifungal prophylaxis
     Dosage: 50 MG (POWDER FOR LIPOSOME SUSPENSION FOR INFUSION/RESPIRATORY (INHALATION) ROUTE)
     Route: 055
     Dates: start: 20240608
  3. MIDAZOLAM [Suspect]
     Active Substance: MIDAZOLAM
     Indication: Sedation
     Route: 042
     Dates: start: 20240607
  4. ACETAMINOPHEN [Suspect]
     Active Substance: ACETAMINOPHEN
     Indication: Analgesic therapy
     Dosage: UNK
     Route: 048
     Dates: start: 20240617
  5. CEFTAZIDIME [Suspect]
     Active Substance: CEFTAZIDIME
     Indication: Pseudomonas infection
     Dosage: UNK
     Route: 042
     Dates: start: 20240613, end: 20240621
  6. EPINEPHRINE HYDROCHLORIDE [Suspect]
     Active Substance: EPINEPHRINE HYDROCHLORIDE
     Indication: Vasopressive therapy
     Dosage: UNK
     Route: 042
     Dates: start: 20240607, end: 20240621
  7. GANCICLOVIR SODIUM [Suspect]
     Active Substance: GANCICLOVIR SODIUM
     Indication: Antiviral prophylaxis
     Dosage: 500 MG (POWDER FOR SOLUTION FOR DILUTION FOR INFUSION)
     Route: 042
     Dates: start: 20240608, end: 20240617
  8. HEPARIN SODIUM [Suspect]
     Active Substance: HEPARIN SODIUM
     Indication: Thrombosis prophylaxis
     Dosage: UNK (5000 UI/0,2 ML, SOLUTION FOR SUBCUTANEOUS INJECTION)
     Route: 058
     Dates: start: 20240616, end: 20240619
  9. CELLCEPT [Suspect]
     Active Substance: MYCOPHENOLATE MOFETIL
     Indication: Prophylaxis against transplant rejection
     Dosage: UNK
     Route: 048
     Dates: start: 20240607
  10. BACTRIM [Suspect]
     Active Substance: SULFAMETHOXAZOLE\TRIMETHOPRIM
     Indication: Antifungal prophylaxis
     Dosage: UNK (40 MG/ML + 8 MG/ML, SUSPENSION BUVABLE)
     Route: 048
     Dates: start: 20240611
  11. AMIKACIN [Suspect]
     Active Substance: AMIKACIN
     Indication: Septic shock
     Dosage: UNK
     Route: 065
     Dates: start: 20240612, end: 20240612
  12. CEFAZOLIN SODIUM [Suspect]
     Active Substance: CEFAZOLIN SODIUM
     Indication: Antibiotic prophylaxis
     Dosage: UNK
     Route: 042
     Dates: start: 20240607, end: 20240613
  13. NICARDIPINE [Suspect]
     Active Substance: NICARDIPINE
     Indication: Hypertension
     Dosage: UNK (10 MG/10 ML, SOLUTION INJECTABLE)
     Route: 042
     Dates: start: 20240609, end: 20240616
  14. METHYLPREDNISOLONE HEMISUCCINATE [Suspect]
     Active Substance: METHYLPREDNISOLONE HEMISUCCINATE
     Indication: Prophylaxis against transplant rejection
     Dosage: UNK
     Route: 042
     Dates: start: 20240607, end: 20240617
  15. FUROSEMIDE [Suspect]
     Active Substance: FUROSEMIDE
     Indication: Fluid retention
     Dosage: UNK
     Route: 042
     Dates: start: 20240612
  16. FUNGIZONE [Suspect]
     Active Substance: AMPHOTERICIN B
     Indication: Antifungal prophylaxis
     Dosage: 10 % (DRINKABLE SUSPENSION)
     Route: 048
     Dates: start: 20240608
  17. DEXMEDETOMIDINE [Suspect]
     Active Substance: DEXMEDETOMIDINE
     Indication: Sedation
     Dosage: UNK 100 UG/ML (SOLUTION FOR DILUTION FOR INFUSION)
     Route: 042
     Dates: start: 20240607
  18. VALGANCICLOVIR HYDROCHLORIDE [Suspect]
     Active Substance: VALGANCICLOVIR HYDROCHLORIDE
     Indication: Antiviral prophylaxis
     Dosage: UNK (50 MG/ML, POWDER FOR ORAL SOLUTION)
     Route: 042
     Dates: start: 20240617
  19. NYSTATIN [Suspect]
     Active Substance: NYSTATIN
     Indication: Antifungal prophylaxis
     Dosage: UNK (1.000.000 U.I)
     Route: 048
     Dates: start: 20240617, end: 20240710
  20. EPINEPHRINE [Suspect]
     Active Substance: EPINEPHRINE
     Indication: Vasopressive therapy
     Route: 042
     Dates: start: 20240607, end: 20240621
  21. PIPERACILLIN AND TAZOBACTAM [Suspect]
     Active Substance: PIPERACILLIN SODIUM\TAZOBACTAM SODIUM
     Indication: Pseudomonas infection
     Dosage: 4 G/0.5 G
     Route: 042
     Dates: start: 20240622, end: 20240717
  22. PIPERACILLIN AND TAZOBACTAM [Suspect]
     Active Substance: PIPERACILLIN SODIUM\TAZOBACTAM SODIUM
     Route: 042
     Dates: start: 20240612, end: 20240612
  23. NOREPINEPHRINE [Suspect]
     Active Substance: NOREPINEPHRINE\NOREPINEPHRINE BITARTRATE
     Indication: Vasopressive therapy
     Route: 042
     Dates: start: 20240607, end: 20240612
  24. NOREPINEPHRINE [Suspect]
     Active Substance: NOREPINEPHRINE\NOREPINEPHRINE BITARTRATE
     Route: 042
     Dates: start: 20240628, end: 20240707
  25. SUFENTANIL [Suspect]
     Active Substance: SUFENTANIL
     Indication: Analgesic therapy
     Route: 042
     Dates: start: 20240607, end: 20240620
  26. SUFENTANIL [Suspect]
     Active Substance: SUFENTANIL
     Route: 042
     Dates: start: 20240701, end: 20240706
  27. PANTOPRAZOLE [Suspect]
     Active Substance: PANTOPRAZOLE
     Indication: Prophylaxis against gastrointestinal ulcer
     Dosage: 40 MG (POUDRE POUR SOLUTION INJECTABLE)
     Route: 042
     Dates: start: 20240617

REACTIONS (3)
  - Myocardial calcification [Recovering/Resolving]
  - Off label use [Unknown]
  - Off label use [Not Recovered/Not Resolved]

NARRATIVE: CASE EVENT DATE: 20240607
